FAERS Safety Report 9734375 (Version 2)
Quarter: 2013Q4

REPORT INFORMATION
  Report Type: Spontaneous
  Country: JP (occurrence: JP)
  Receive Date: 20131206
  Receipt Date: 20131216
  Transmission Date: 20140711
  Serious: Yes (Other)
  Sender: FDA-Public Use
  Company Number: JP-009507513-1312JPN002195

PATIENT
  Age: 71 Year
  Sex: Male

DRUGS (5)
  1. REFLEX [Suspect]
     Dosage: UNK
     Route: 048
  2. CHLORPROMAZINE [Concomitant]
     Indication: IRRITABILITY
     Dosage: UNK
     Route: 065
  3. RISPERIDONE [Concomitant]
     Dosage: 3 MG, UNK
     Route: 048
  4. AMOXAPINE [Concomitant]
     Dosage: UNK
     Route: 048
  5. AMOXAPINE [Concomitant]
     Dosage: UNK
     Route: 048

REACTIONS (4)
  - Ileus [Unknown]
  - Dysphagia [Unknown]
  - Parkinsonism [Unknown]
  - Delirium [Unknown]
